FAERS Safety Report 14636441 (Version 1)
Quarter: 2018Q1

REPORT INFORMATION
  Report Type: Other
  Country: IT (occurrence: IT)
  Receive Date: 20180314
  Receipt Date: 20180314
  Transmission Date: 20180509
  Serious: Yes (Hospitalization, Other)
  Sender: FDA-Public Use
  Company Number: IT-GLENMARK PHARMACEUTICALS-2018GMK033140

PATIENT

DRUGS (3)
  1. LAMOTRIGINE. [Suspect]
     Active Substance: LAMOTRIGINE
     Dosage: 150 MG, UNK
     Route: 063
  2. LAMOTRIGINE. [Suspect]
     Active Substance: LAMOTRIGINE
     Dosage: 200 MG, UNK
     Route: 064
  3. LAMOTRIGINE. [Suspect]
     Active Substance: LAMOTRIGINE
     Indication: EPILEPSY
     Dosage: 120 MG, UNK
     Route: 064

REACTIONS (8)
  - Decreased appetite [Recovered/Resolved]
  - Pallor [Recovered/Resolved]
  - Mucosal discolouration [Recovered/Resolved]
  - Foetal exposure during pregnancy [Unknown]
  - Abdominal distension [Recovered/Resolved]
  - Normochromic normocytic anaemia [Recovered/Resolved]
  - Neutropenia [Recovered/Resolved]
  - Exposure via breast milk [Unknown]
